FAERS Safety Report 8807031 (Version 1)
Quarter: 2012Q4

REPORT INFORMATION
  Report Type: 
  Country: GB (occurrence: GB)
  Receive Date: 20120925
  Receipt Date: 20120925
  Transmission Date: 20130627
  Serious: Yes (Other)
  Sender: FDA-Public Use
  Company Number: PHHY2012GB081174

PATIENT
  Age: 11 Month

DRUGS (4)
  1. CICLOSPORIN [Suspect]
     Indication: PROPHYLAXIS AGAINST GRAFT VERSUS HOST DISEASE
  2. STEROIDS NOS [Suspect]
  3. METHOTREXATE [Concomitant]
     Indication: PROPHYLAXIS AGAINST GRAFT VERSUS HOST DISEASE
  4. IMMUNOGLOBULINS [Concomitant]
     Route: 042

REACTIONS (9)
  - Mucosal inflammation [Unknown]
  - Cushingoid [Unknown]
  - Sepsis [Unknown]
  - Hypertension [Unknown]
  - Hypertrichosis [Unknown]
  - Delayed engraftment [Unknown]
  - Graft versus host disease in intestine [Unknown]
  - Graft versus host disease in skin [Unknown]
  - Device related sepsis [None]
